FAERS Safety Report 5301225-3 (Version None)
Quarter: 2007Q2

REPORT INFORMATION
  Report Type: 
  Country: None (occurrence: None)
  Receive Date: 20070418
  Receipt Date: 20070412
  Transmission Date: 20071010
  Serious: Yes (Other)
  Sender: FDA-Public Use
  Company Number: GB-PFIZER INC-2007030000

PATIENT
  Age: 74 Year
  Sex: Male

DRUGS (2)
  1. SERTRALINE [Suspect]
     Indication: ANXIETY
     Dates: start: 19990701
  2. SERTRALINE [Suspect]
     Indication: DEPRESSION

REACTIONS (3)
  - AGITATION [None]
  - HOMICIDE [None]
  - SUICIDAL IDEATION [None]
